FAERS Safety Report 8732435 (Version 2)
Quarter: 2012Q4

REPORT INFORMATION
  Report Type: Report from Study
  Country: GB (occurrence: GB)
  Receive Date: 20120820
  Receipt Date: 20121022
  Transmission Date: 20130627
  Serious: Yes (Other)
  Sender: FDA-Public Use
  Company Number: GB-ROCHE-1090875

PATIENT
  Age: 47 Year
  Sex: Female
  Weight: 74.4 kg

DRUGS (4)
  1. TRASTUZUMAB [Suspect]
     Indication: BREAST CANCER METASTATIC
     Dosage: On 5/JUL/2012 most recent dose of 430.5 mg prior to event was taken
     Route: 042
     Dates: start: 20120525
  2. ERIBULIN [Suspect]
     Indication: BREAST CANCER METASTATIC
     Dosage: On 12/JUL/2012 most recent dose of 2.2 mg prior to event was taken
     Route: 042
     Dates: start: 20120525
  3. CO-CODAMOL [Concomitant]
     Indication: MUSCULOSKELETAL PAIN
     Route: 065
     Dates: start: 20120419
  4. IBUPROFEN [Concomitant]
     Indication: HEADACHE
     Route: 065
     Dates: start: 20120527

REACTIONS (1)
  - Sinusitis [Not Recovered/Not Resolved]
